FAERS Safety Report 18846743 (Version 1)
Quarter: 2021Q1

REPORT INFORMATION
  Report Type: Spontaneous
  Country: CA (occurrence: CA)
  Receive Date: 20210204
  Receipt Date: 20210204
  Transmission Date: 20210419
  Serious: Yes (Death)
  Sender: FDA-Public Use
  Company Number: CA-ROCHE-2757748

PATIENT
  Age: 65 Year
  Sex: Female
  Weight: 62 kg

DRUGS (13)
  1. METHYLPREDNISOLONE SODIUM SUCCINATE. [Suspect]
     Active Substance: METHYLPREDNISOLONE SODIUM SUCCINATE
     Indication: PREMEDICATION
     Route: 042
  2. ACTEMRA [Suspect]
     Active Substance: TOCILIZUMAB
     Indication: NEUROMYELITIS OPTICA SPECTRUM DISORDER
     Route: 042
  3. AMLODIPINE [Concomitant]
     Active Substance: AMLODIPINE BESYLATE
     Route: 065
  4. PREDNISONE. [Concomitant]
     Active Substance: PREDNISONE
  5. ASA [Concomitant]
     Active Substance: ASPIRIN
     Route: 065
  6. ACETYLSALICYLIC ACID [Concomitant]
     Active Substance: ASPIRIN
     Route: 065
  7. ACTEMRA [Suspect]
     Active Substance: TOCILIZUMAB
     Dosage: 1460.0 DAYS
     Route: 042
  8. ACETAMINOPHEN. [Concomitant]
     Active Substance: ACETAMINOPHEN
     Route: 048
  9. LEVOTHYROXINE SODIUM. [Concomitant]
     Active Substance: LEVOTHYROXINE SODIUM
  10. DIPHENHYDRAMINE HYDROCHLORIDE. [Concomitant]
     Active Substance: DIPHENHYDRAMINE HYDROCHLORIDE
     Route: 048
  11. RITUXIMAB. [Suspect]
     Active Substance: RITUXIMAB
     Indication: NEUROMYELITIS OPTICA SPECTRUM DISORDER
     Route: 041
  12. CLOPIDOGREL BISULFATE. [Concomitant]
     Active Substance: CLOPIDOGREL BISULFATE
     Route: 065
  13. ROSUVASTATIN. [Concomitant]
     Active Substance: ROSUVASTATIN
     Route: 065

REACTIONS (34)
  - Chest discomfort [Fatal]
  - Heart rate decreased [Fatal]
  - Hypertension [Fatal]
  - Pain in extremity [Fatal]
  - Abdominal pain [Fatal]
  - Asthenia [Fatal]
  - Blood pressure systolic increased [Fatal]
  - Decreased appetite [Fatal]
  - Malaise [Fatal]
  - Microvascular coronary artery disease [Fatal]
  - Nausea [Fatal]
  - Neurological symptom [Fatal]
  - Off label use [Fatal]
  - Gastrointestinal pain [Fatal]
  - Headache [Fatal]
  - Arthralgia [Fatal]
  - Neuralgia [Fatal]
  - Myalgia [Fatal]
  - Somnolence [Fatal]
  - Tooth fracture [Fatal]
  - Urinary tract infection [Fatal]
  - Angina pectoris [Fatal]
  - Chest pain [Fatal]
  - Paraesthesia [Fatal]
  - Weight decreased [Fatal]
  - Rheumatoid arthritis [Fatal]
  - Arterial occlusive disease [Fatal]
  - Bronchitis [Fatal]
  - Death [Fatal]
  - Hypoaesthesia [Fatal]
  - Intentional product use issue [Fatal]
  - Balance disorder [Fatal]
  - Influenza like illness [Fatal]
  - Musculoskeletal stiffness [Fatal]
